FAERS Safety Report 16150186 (Version 1)
Quarter: 2019Q2

REPORT INFORMATION
  Report Type: Spontaneous
  Country: US (occurrence: US)
  Receive Date: 20190403
  Receipt Date: 20190403
  Transmission Date: 20190711
  Serious: No
  Sender: FDA-Public Use
  Company Number: US-TEVA-2019-US-1024704

PATIENT
  Sex: Female
  Weight: 86.26 kg

DRUGS (2)
  1. OLANZAPINE. [Suspect]
     Active Substance: OLANZAPINE
     Indication: NIGHTMARE
  2. OLANZAPINE. [Suspect]
     Active Substance: OLANZAPINE
     Indication: POST-TRAUMATIC STRESS DISORDER
     Dosage: 7.5 MILLIGRAM DAILY; AT BEDTIME
     Route: 048
     Dates: start: 201810

REACTIONS (3)
  - Weight increased [Unknown]
  - Glucose tolerance impaired [Unknown]
  - Swelling [Unknown]
